FAERS Safety Report 8438304-8 (Version None)
Quarter: 2012Q2

REPORT INFORMATION
  Report Type: 
  Country: None (occurrence: None)
  Receive Date: 20120614
  Receipt Date: 20120605
  Transmission Date: 20120825
  Serious: Yes (Hospitalization)
  Sender: FDA-Public Use
  Company Number: JP-ABBOTT-12P-087-0921243-00

PATIENT
  Sex: Female
  Weight: 52 kg

DRUGS (11)
  1. LEVOFLOXACIN [Suspect]
     Indication: UPPER RESPIRATORY TRACT INFLAMMATION
     Route: 048
     Dates: start: 20120301, end: 20120304
  2. HUMIRA [Suspect]
     Indication: RHEUMATOID ARTHRITIS
     Route: 058
     Dates: start: 20120107, end: 20120304
  3. SERRAPEPTASE [Concomitant]
     Indication: NASOPHARYNGITIS
     Route: 048
  4. LEVOFLOXACIN [Suspect]
     Indication: PNEUMONIA
  5. PRANLUKAST HYDRATE [Concomitant]
     Indication: NASOPHARYNGITIS
  6. LEUCOVORIN CALCIUM [Concomitant]
     Indication: ADVERSE DRUG REACTION
  7. TRANEXAMIC ACID [Concomitant]
     Indication: NASOPHARYNGITIS
     Route: 048
  8. LEUCOVORIN CALCIUM [Concomitant]
     Indication: PROPHYLAXIS
     Route: 048
     Dates: start: 20110930, end: 20120312
  9. LANSOPRAZOLE [Concomitant]
     Indication: GASTRITIS PROPHYLAXIS
     Route: 048
     Dates: start: 20120204, end: 20120301
  10. RHEUMATREX [Suspect]
     Indication: RHEUMATOID ARTHRITIS
     Route: 048
     Dates: start: 20111217, end: 20120310
  11. ISONIAZID [Suspect]
     Indication: ANTIBIOTIC PROPHYLAXIS
     Route: 048
     Dates: start: 20120107, end: 20120310

REACTIONS (12)
  - RHEUMATOID ARTHRITIS [None]
  - RESPIRATORY TRACT INFECTION [None]
  - PNEUMONIA [None]
  - PNEUMONIA VIRAL [None]
  - BLOOD BETA-D-GLUCAN INCREASED [None]
  - BRONCHOALVEOLAR LAVAGE ABNORMAL [None]
  - ALVEOLAR-ARTERIAL OXYGEN GRADIENT INCREASED [None]
  - NASOPHARYNGITIS [None]
  - DYSPNOEA EXERTIONAL [None]
  - COMPUTERISED TOMOGRAM ABNORMAL [None]
  - UPPER RESPIRATORY TRACT INFLAMMATION [None]
  - CONDITION AGGRAVATED [None]
